FAERS Safety Report 8884298 (Version 1)
Quarter: 2012Q4

REPORT INFORMATION
  Report Type: 
  Country: US (occurrence: US)
  Receive Date: 20121102
  Receipt Date: 20121102
  Transmission Date: 20130627
  Serious: No
  Sender: FDA-Public Use
  Company Number: US-ASTRAZENECA-2012SE20478

PATIENT
  Age: 65 Year
  Sex: Male
  Weight: 73.9 kg

DRUGS (2)
  1. CRESTOR [Suspect]
     Indication: BLOOD CHOLESTEROL INCREASED
     Dosage: AT NIGHT
     Route: 048
     Dates: start: 2011
  2. CRESTOR [Suspect]
     Indication: BLOOD TRIGLYCERIDES INCREASED
     Dosage: AT NIGHT
     Route: 048
     Dates: start: 2011

REACTIONS (5)
  - Palpitations [Unknown]
  - Agitation [Unknown]
  - Restlessness [Unknown]
  - Fear [Unknown]
  - Insomnia [Unknown]
